FAERS Safety Report 12778519 (Version 1)
Quarter: 2016Q3

REPORT INFORMATION
  Report Type: Spontaneous
  Country: US (occurrence: US)
  Receive Date: 20160926
  Receipt Date: 20160926
  Transmission Date: 20161109
  Serious: No
  Sender: FDA-Public Use
  Company Number: US-ASTRAZENECA-2016SE92305

PATIENT
  Sex: Female

DRUGS (4)
  1. METFORMIN [Suspect]
     Active Substance: METFORMIN HYDROCHLORIDE
     Indication: POLYCYSTIC OVARIES
     Route: 065
  2. GLYBURIDE. [Suspect]
     Active Substance: GLYBURIDE
     Route: 065
  3. VICTOZA [Concomitant]
     Active Substance: LIRAGLUTIDE
  4. BYETTA [Suspect]
     Active Substance: EXENATIDE
     Route: 065

REACTIONS (6)
  - Gestational diabetes [Unknown]
  - Rheumatoid arthritis [Unknown]
  - Weight increased [Unknown]
  - Abdominal discomfort [Unknown]
  - Exposure during pregnancy [Unknown]
  - Blood glucose increased [Unknown]
